FAERS Safety Report 23796249 (Version 1)
Quarter: 2024Q2

REPORT INFORMATION
  Report Type: Spontaneous
  Country: CN (occurrence: CN)
  Receive Date: 20240430
  Receipt Date: 20240430
  Transmission Date: 20240716
  Serious: Yes (Hospitalization)
  Sender: FDA-Public Use
  Company Number: CN-002147023-NVSC2024CN088857

PATIENT
  Age: 55 Year
  Sex: Female
  Weight: 67.5 kg

DRUGS (1)
  1. TEGRETOL [Suspect]
     Active Substance: CARBAMAZEPINE
     Indication: Trigeminal neuralgia
     Dosage: 2.000 DOSAGE FORM, QD (TABLETS)
     Route: 048
     Dates: start: 20240403, end: 20240415

REACTIONS (9)
  - Drug eruption [Recovering/Resolving]
  - Pyrexia [Recovering/Resolving]
  - Erythema multiforme [Unknown]
  - Nausea [Recovered/Resolved]
  - Asthenia [Unknown]
  - Respiratory rate increased [Recovered/Resolved]
  - Blood pressure decreased [Recovering/Resolving]
  - Oral discharge [Unknown]
  - Blood pressure increased [Recovering/Resolving]

NARRATIVE: CASE EVENT DATE: 20240415
